FAERS Safety Report 4785439-7 (Version None)
Quarter: 2005Q3

REPORT INFORMATION
  Report Type: 
  Country: None (occurrence: None)
  Receive Date: 20050926
  Receipt Date: 20050912
  Transmission Date: 20060218
  Serious: Yes (Death)
  Sender: FDA-Public Use
  Company Number: THYM-10726

PATIENT
  Age: 55 Year
  Sex: Male
  Weight: 74.3899 kg

DRUGS (8)
  1. THYMOGLOBULIN [Suspect]
     Indication: BONE MARROW CONDITIONING REGIMEN
     Dosage: 1.5 MG/KG QD IV
     Route: 042
     Dates: start: 20050613, end: 20050615
  2. ACYCLOVIR [Concomitant]
  3. CEFEPIME [Concomitant]
  4. CLADRIBINE [Concomitant]
  5. CYCLOSPORINE [Concomitant]
  6. MYCOPHENOLATE  MOFETIL [Concomitant]
  7. TYLENOL (CAPLET) [Concomitant]
  8. CIPRO FLOXIN [Concomitant]

REACTIONS (4)
  - ANOXIC ENCEPHALOPATHY [None]
  - BRAIN DEATH [None]
  - CARDIAC ARREST [None]
  - CONVULSION [None]
